FAERS Safety Report 24282624 (Version 1)
Quarter: 2024Q3

REPORT INFORMATION
  Report Type: Other
  Country: IT (occurrence: IT)
  Receive Date: 20240904
  Receipt Date: 20240904
  Transmission Date: 20241017
  Serious: Yes (Hospitalization)
  Sender: ORBION PHARMACEUTICALS
  Company Number: IT-OrBion Pharmaceuticals Private Limited-2161145

PATIENT
  Age: 53 Year
  Sex: Male

DRUGS (2)
  1. DIVALPROEX SODIUM [Suspect]
     Active Substance: DIVALPROEX SODIUM
     Indication: Bipolar disorder
     Route: 065
  2. ARIPIPRAZOLE [Concomitant]
     Active Substance: ARIPIPRAZOLE
     Route: 065

REACTIONS (1)
  - Pleural effusion [Recovering/Resolving]
